FAERS Safety Report 23272570 (Version 2)
Quarter: 2024Q1

REPORT INFORMATION
  Report Type: Report from Study
  Country: US (occurrence: US)
  Receive Date: 20231207
  Receipt Date: 20240104
  Transmission Date: 20240409
  Serious: Yes (Hospitalization)
  Sender: FDA-Public Use
  Company Number: US-Eisai-EC-2023-154353

PATIENT
  Age: 19 Year
  Sex: Female

DRUGS (10)
  1. LENVIMA [Suspect]
     Active Substance: LENVATINIB
     Indication: Hepatic cancer
     Dates: start: 20231117
  2. LENVIMA [Suspect]
     Active Substance: LENVATINIB
     Dates: end: 202312
  3. LENVIMA [Suspect]
     Active Substance: LENVATINIB
     Dates: start: 202312
  4. GRANISETRON HYDROCHLORIDE [Concomitant]
     Active Substance: GRANISETRON HYDROCHLORIDE
  5. ONDANSETRON HYDROCHLORIDE [Concomitant]
     Active Substance: ONDANSETRON HYDROCHLORIDE
  6. VITAMINS [Concomitant]
     Active Substance: VITAMINS
  7. LEXAPRO [Concomitant]
     Active Substance: ESCITALOPRAM OXALATE
  8. SIROLIMUS [Concomitant]
     Active Substance: SIROLIMUS
  9. OXALIPLATIN [Concomitant]
     Active Substance: OXALIPLATIN
     Dosage: 100MG/20ML VIAL
  10. GEMCITABINE HYDROCHLORIDE [Concomitant]
     Active Substance: GEMCITABINE HYDROCHLORIDE
     Dosage: 100 MG/ML VIAL

REACTIONS (3)
  - Full blood count abnormal [Recovering/Resolving]
  - Nausea [Unknown]
  - Vomiting [Unknown]

NARRATIVE: CASE EVENT DATE: 20231204
